FAERS Safety Report 5989693-5 (Version None)
Quarter: 2008Q4

REPORT INFORMATION
  Report Type: 
  Country: None (occurrence: None)
  Receive Date: 20081210
  Receipt Date: 20081208
  Transmission Date: 20090506
  Serious: Yes (Hospitalization, Other)
  Sender: FDA-Public Use
  Company Number: US-ROXANE LABORATORIES, INC.-2008-RO-00217RO

PATIENT
  Sex: Male
  Weight: 80 kg

DRUGS (21)
  1. DIGOXIN [Suspect]
     Route: 048
     Dates: start: 20020101, end: 20071212
  2. CP-751, 871 [Suspect]
     Indication: NON-SMALL CELL LUNG CANCER
     Dosage: 1600MG
     Route: 042
     Dates: start: 20071130
  3. PACLITAXEL [Suspect]
     Indication: NON-SMALL CELL LUNG CANCER
     Dosage: 398MG
     Route: 042
     Dates: start: 20071130
  4. CARBOPLATIN [Suspect]
     Indication: NON-SMALL CELL LUNG CANCER
     Dosage: 517MG
     Route: 042
     Dates: start: 20071130
  5. DIOVAN HCT [Concomitant]
     Route: 048
     Dates: start: 20020101, end: 20071208
  6. FOSAMAX [Concomitant]
     Route: 048
     Dates: start: 20020101
  7. LEVOTHYROXINE SODIUM [Concomitant]
     Route: 048
     Dates: start: 19970101
  8. NORVASC [Concomitant]
     Route: 048
     Dates: start: 20020101
  9. OMEPRAZOLE [Concomitant]
     Route: 048
     Dates: start: 19970101
  10. PREDNISONE TAB [Concomitant]
     Route: 048
     Dates: start: 20050101
  11. VITAMIN D [Concomitant]
     Route: 048
     Dates: start: 20020101
  12. XOPENEX [Concomitant]
     Route: 048
     Dates: start: 20071112
  13. ZETIA [Concomitant]
     Route: 048
     Dates: start: 20020101
  14. LUTEIN [Concomitant]
     Route: 048
     Dates: start: 20071001, end: 20071212
  15. LORAZEPAM [Concomitant]
     Route: 048
     Dates: start: 20071001
  16. AMBIEN [Concomitant]
     Route: 048
     Dates: start: 20071001
  17. HALOPERIDOL [Concomitant]
     Dates: start: 20071210, end: 20071213
  18. METRONIDAZOLE [Concomitant]
     Dates: start: 20071210, end: 20071213
  19. MAGNESIUM SULFATE [Concomitant]
     Dates: start: 20071210, end: 20071213
  20. FOLIC ACID [Concomitant]
     Route: 048
     Dates: start: 20071209
  21. SEDATIVES [Concomitant]

REACTIONS (7)
  - BRADYCARDIA [None]
  - CARDIOACTIVE DRUG LEVEL BELOW THERAPEUTIC [None]
  - CONFUSIONAL STATE [None]
  - DEHYDRATION [None]
  - MUCOSAL INFLAMMATION [None]
  - NEUTROPENIA [None]
  - OVERDOSE [None]
